FAERS Safety Report 4373787-4 (Version None)
Quarter: 2004Q2

REPORT INFORMATION
  Report Type: 
  Country: None (occurrence: None)
  Receive Date: 20040608
  Receipt Date: 20040608
  Transmission Date: 20050107
  Serious: Yes (Hospitalization)
  Sender: FDA-Public Use
  Company Number: None

PATIENT
  Age: 31 Year
  Sex: Female
  Weight: 81.46 kg

DRUGS (28)
  1. OXALIPLATIN 50MG/M2 [Suspect]
     Indication: COLON CANCER METASTATIC
     Dosage: FOLFOX Q 14 DAYS IV
     Route: 042
     Dates: start: 20040126
  2. OXALIPLATIN 50MG/M2 [Suspect]
     Indication: COLON CANCER METASTATIC
     Dosage: FOLFOX Q 14 DAYS IV
     Route: 042
     Dates: start: 20040216
  3. OXALIPLATIN 50MG/M2 [Suspect]
     Indication: COLON CANCER METASTATIC
     Dosage: FOLFOX Q 14 DAYS IV
     Route: 042
     Dates: start: 20040308
  4. OXALIPLATIN 50MG/M2 [Suspect]
     Indication: COLON CANCER METASTATIC
     Dosage: FOLFOX Q 14 DAYS IV
     Route: 042
     Dates: start: 20040322
  5. OXALIPLATIN 50MG/M2 [Suspect]
     Indication: COLON CANCER METASTATIC
     Dosage: FOLFOX Q 14 DAYS IV
     Route: 042
     Dates: start: 20040412
  6. OXALIPLATIN 50MG/M2 [Suspect]
     Indication: COLON CANCER METASTATIC
     Dosage: FOLFOX Q 14 DAYS IV
     Route: 042
     Dates: start: 20040505
  7. OXALIPLATIN 50MG/M2 [Suspect]
     Indication: COLON CANCER METASTATIC
     Dosage: FOLFOX Q 14 DAYS IV
     Route: 042
     Dates: start: 20040519
  8. FLUOROURACIL [Suspect]
     Dosage: FOLFOX Q 14 DAYS IV; 400 MG/M2 IV, 1360 MG/M2
     Route: 042
     Dates: start: 20040202
  9. FLUOROURACIL [Suspect]
     Dosage: FOLFOX Q 14 DAYS IV; 400 MG/M2 IV, 1360 MG/M2
     Route: 042
     Dates: start: 20040209
  10. FLUOROURACIL [Suspect]
     Dosage: FOLFOX Q 14 DAYS IV; 400 MG/M2 IV, 1360 MG/M2
     Route: 042
     Dates: start: 20040223
  11. FLUOROURACIL [Suspect]
     Dosage: FOLFOX Q 14 DAYS IV; 400 MG/M2 IV, 1360 MG/M2
     Route: 042
     Dates: start: 20040301
  12. FLUOROURACIL [Suspect]
     Dosage: FOLFOX Q 14 DAYS IV; 400 MG/M2 IV, 1360 MG/M2
     Route: 042
     Dates: start: 20040315
  13. FLUOROURACIL [Suspect]
     Dosage: FOLFOX Q 14 DAYS IV; 400 MG/M2 IV, 1360 MG/M2
     Route: 042
     Dates: start: 20040319
  14. FLUOROURACIL [Suspect]
     Dosage: FOLFOX Q 14 DAYS IV; 400 MG/M2 IV, 1360 MG/M2
     Route: 042
     Dates: start: 20040403
  15. FLUOROURACIL [Suspect]
     Dosage: FOLFOX Q 14 DAYS IV; 400 MG/M2 IV, 1360 MG/M2
     Route: 042
     Dates: start: 20040419
  16. FLUOROURACIL [Suspect]
     Dosage: FOLFOX Q 14 DAYS IV; 400 MG/M2 IV, 1360 MG/M2
     Route: 042
     Dates: start: 20040428
  17. FLUOROURACIL [Suspect]
     Dosage: FOLFOX Q 14 DAYS IV; 400 MG/M2 IV, 1360 MG/M2
     Route: 042
     Dates: start: 20040512
  18. FLUOROURACIL [Suspect]
     Dosage: FOLFOX Q 14 DAYS IV; 400 MG/M2 IV, 1360 MG/M2
     Route: 042
     Dates: start: 20040526
  19. LV [Suspect]
     Dosage: FOLFOX Q 14 DAYS IV
     Route: 042
  20. COUMADIN [Concomitant]
  21. MS CONTIN [Concomitant]
  22. MS CONTIN [Concomitant]
  23. KCL TAB [Concomitant]
  24. VITAMIN CAP [Concomitant]
  25. COMPAZINE [Concomitant]
  26. C225 [Suspect]
     Dosage: 250MG/M2 IV Q WEEK
     Route: 042
     Dates: start: 20040126
  27. C225 [Suspect]
     Dosage: 250MG/M2 IV Q WEEK
     Route: 042
     Dates: start: 20040216
  28. C225 [Suspect]
     Dosage: 250MG/M2 IV Q WEEK
     Route: 042
     Dates: start: 20040308

REACTIONS (3)
  - LACUNAR INFARCTION [None]
  - PNEUMONIA [None]
  - WHITE BLOOD CELL COUNT DECREASED [None]
